FAERS Safety Report 7676062-5 (Version None)
Quarter: 2011Q3

REPORT INFORMATION
  Report Type: 
  Country: None (occurrence: None)
  Receive Date: 20110811
  Receipt Date: 20110808
  Transmission Date: 20111222
  Serious: No
  Sender: FDA-Public Use
  Company Number: US-BIOGENIDEC-2011BI030002

PATIENT
  Sex: Male

DRUGS (3)
  1. TYSABRI [Suspect]
     Indication: MULTIPLE SCLEROSIS
     Route: 042
     Dates: start: 20110225
  2. TYSABRI [Suspect]
     Route: 042
     Dates: start: 20090505, end: 20100525
  3. TYSABRI [Suspect]
     Route: 042
     Dates: start: 20080214, end: 20081201

REACTIONS (1)
  - CYSTITIS [None]
